FAERS Safety Report 14138027 (Version 2)
Quarter: 2017Q4

REPORT INFORMATION
  Report Type: Spontaneous
  Country: SE (occurrence: SE)
  Receive Date: 20171027
  Receipt Date: 20171205
  Transmission Date: 20180321
  Serious: Yes (Death, Other)
  Sender: FDA-Public Use
  Company Number: SE-PFIZER INC-2017460011

PATIENT
  Age: 32 Year
  Sex: Female
  Weight: 115 kg

DRUGS (2)
  1. FRAGMIN [Suspect]
     Active Substance: DALTEPARIN SODIUM
     Indication: CORONARY ARTERY EMBOLISM
     Dosage: 42000 IU, DAILY
     Route: 058
     Dates: start: 2005, end: 2005
  2. FRAGMIN [Suspect]
     Active Substance: DALTEPARIN SODIUM
     Indication: HEART VALVE REPLACEMENT
     Dosage: 5000 IU, DAILY
     Dates: end: 2005

REACTIONS (2)
  - Myocardial infarction [Recovered/Resolved]
  - Abdominal wall haemorrhage [Fatal]

NARRATIVE: CASE EVENT DATE: 200503
